FAERS Safety Report 5030401-2 (Version None)
Quarter: 2006Q2

REPORT INFORMATION
  Report Type: 
  Country: None (occurrence: None)
  Receive Date: 20060615
  Receipt Date: 20060614
  Transmission Date: 20061013
  Serious: Yes (Hospitalization)
  Sender: FDA-Public Use
  Company Number: 219986

PATIENT
  Age: 49 Year
  Sex: Female
  Weight: 86 kg

DRUGS (13)
  1. HERCEPTIN [Suspect]
     Indication: BREAST CANCER
     Dosage: SEE IMAGE
     Dates: start: 20050526, end: 20050526
  2. HERCEPTIN [Suspect]
     Indication: BREAST CANCER
     Dosage: SEE IMAGE
     Dates: start: 20050526, end: 20050712
  3. HERCEPTIN [Suspect]
     Indication: BREAST CANCER
     Dosage: SEE IMAGE
     Dates: start: 20050804
  4. DOXORUBICIN HCL [Concomitant]
  5. CYCLOPHOSPHAMIDE [Concomitant]
  6. PACLITAXEL [Concomitant]
  7. NEULASTA [Concomitant]
  8. LOCAL IRRADIATION (RADIATION THERAPY) [Concomitant]
  9. ZOLOFT [Concomitant]
  10. ATIVAN [Concomitant]
  11. IBUPROFEN [Concomitant]
  12. MORPHINE [Concomitant]
  13. METOPROLOL TARTRATE [Concomitant]

REACTIONS (11)
  - ATRIAL BIGEMINY [None]
  - ATRIAL FIBRILLATION [None]
  - ATRIAL TACHYCARDIA [None]
  - MITRAL VALVE INCOMPETENCE [None]
  - PERICARDIAL EFFUSION [None]
  - PULMONARY VALVE INCOMPETENCE [None]
  - PYREXIA [None]
  - RADIATION PERICARDITIS [None]
  - SUPRAVENTRICULAR EXTRASYSTOLES [None]
  - TRICUSPID VALVE INCOMPETENCE [None]
  - TROPONIN INCREASED [None]
